FAERS Safety Report 7064836-3 (Version None)
Quarter: 2010Q4

REPORT INFORMATION
  Report Type: 
  Country: None (occurrence: None)
  Receive Date: 20101022
  Receipt Date: 20101022
  Transmission Date: 20110411
  Serious: Yes (Other)
  Sender: FDA-Public Use
  Company Number: None

PATIENT
  Sex: Female
  Weight: 53.5244 kg

DRUGS (1)
  1. FORTEO [Suspect]
     Indication: OSTEOPOROSIS
     Dosage: 20 MCG PER DOSE DAILY ID
     Route: 023
     Dates: start: 20090501, end: 20101010

REACTIONS (2)
  - NO THERAPEUTIC RESPONSE [None]
  - UPPER LIMB FRACTURE [None]
